FAERS Safety Report 23651264 (Version 1)
Quarter: 2024Q1

REPORT INFORMATION
  Report Type: Spontaneous
  Country: US (occurrence: US)
  Receive Date: 20240320
  Receipt Date: 20240320
  Transmission Date: 20240409
  Serious: No
  Sender: FDA-Public Use
  Company Number: US-BAXTER-2024BAX014781

PATIENT

DRUGS (1)
  1. NOREPINEPHRINE BITARTRATE [Suspect]
     Active Substance: NOREPINEPHRINE BITARTRATE
     Indication: Hypotension
     Dosage: (4 MG / 250 ML) AT AN UNKNOWN DOSE AND FREQUENCY
     Route: 042

REACTIONS (1)
  - Drug ineffective [Recovered/Resolved]
